FAERS Safety Report 6686564-6 (Version None)
Quarter: 2010Q2

REPORT INFORMATION
  Report Type: 
  Country: None (occurrence: None)
  Receive Date: 20100415
  Receipt Date: 20100406
  Transmission Date: 20101027
  Serious: Yes (Death)
  Sender: FDA-Public Use
  Company Number: 2010AC000249

PATIENT
  Sex: Female

DRUGS (1)
  1. DIGOXIN [Suspect]
     Dosage: PO
     Route: 048
     Dates: end: 20080430

REACTIONS (12)
  - ACTIVITIES OF DAILY LIVING IMPAIRED [None]
  - ANXIETY [None]
  - BLOOD PRESSURE DECREASED [None]
  - BRADYCARDIA [None]
  - CARDIAC DISORDER [None]
  - DIZZINESS [None]
  - DRUG TOXICITY [None]
  - ECONOMIC PROBLEM [None]
  - MULTIPLE INJURIES [None]
  - NAUSEA [None]
  - PAIN [None]
  - VOMITING [None]
